FAERS Safety Report 7495423-0 (Version None)
Quarter: 2011Q2

REPORT INFORMATION
  Report Type: 
  Country: None (occurrence: None)
  Receive Date: 20110523
  Receipt Date: 20110220
  Transmission Date: 20111010
  Serious: No
  Sender: FDA-Public Use
  Company Number: US-TYCO HEALTHCARE/MALLINCKRODT-T201100510

PATIENT
  Sex: Female
  Weight: 62.585 kg

DRUGS (3)
  1. FENTANYL-100 [Suspect]
     Indication: NEUROPATHY PERIPHERAL
     Dosage: UNK
     Dates: start: 20110218, end: 20110224
  2. CYMBALTA [Concomitant]
     Dosage: 30 MG, QD
     Dates: start: 20110101, end: 20110101
  3. CYMBALTA [Concomitant]
     Indication: NEUROPATHY PERIPHERAL
     Dosage: 60 MG, QD
     Dates: start: 20110201

REACTIONS (3)
  - CONSTIPATION [None]
  - DIZZINESS [None]
  - SOMNOLENCE [None]
